FAERS Safety Report 8918741 (Version 3)
Quarter: 2014Q2

REPORT INFORMATION
  Report Type: Spontaneous
  Country: US (occurrence: US)
  Receive Date: 20121120
  Receipt Date: 20140513
  Transmission Date: 20141212
  Serious: Yes (Other)
  Sender: FDA-Public Use
  Company Number: US-ASTRAZENECA-2012SE20525

PATIENT
  Age: 55 Year
  Sex: Female
  Weight: 93.9 kg

DRUGS (11)
  1. NEXIUM [Suspect]
     Indication: GASTROOESOPHAGEAL REFLUX DISEASE
     Route: 048
     Dates: start: 2001
  2. NEXIUM [Suspect]
     Indication: BARRETT^S OESOPHAGUS
     Route: 048
     Dates: start: 2001
  3. NEXIUM [Suspect]
     Indication: GASTROOESOPHAGEAL REFLUX DISEASE
     Route: 048
  4. NEXIUM [Suspect]
     Indication: BARRETT^S OESOPHAGUS
     Route: 048
  5. NEXIUM [Suspect]
     Indication: GASTROOESOPHAGEAL REFLUX DISEASE
     Route: 048
     Dates: start: 2014, end: 201402
  6. NEXIUM [Suspect]
     Indication: BARRETT^S OESOPHAGUS
     Route: 048
     Dates: start: 2014, end: 201402
  7. PRILOSEC [Suspect]
     Indication: GASTROOESOPHAGEAL REFLUX DISEASE
     Route: 048
     Dates: start: 20030819
  8. COUMADIN [Concomitant]
     Indication: MITRAL VALVE REPAIR
     Dosage: 1.9-4.9 DAILY
     Route: 048
     Dates: start: 2004
  9. LOVENOX [Concomitant]
     Indication: BLOOD DISORDER
     Route: 058
     Dates: start: 200411
  10. HEPARIN [Concomitant]
     Indication: BLOOD DISORDER
     Dosage: VARIES
     Route: 042
     Dates: start: 20041110
  11. FROZEN PLASMA [Concomitant]
     Dates: start: 20041114

REACTIONS (25)
  - Infectious colitis [Unknown]
  - Rectal haemorrhage [Unknown]
  - Heart rate decreased [Unknown]
  - Blood disorder [Unknown]
  - Haemorrhage [Unknown]
  - Haemoptysis [Unknown]
  - Epistaxis [Unknown]
  - Atrioventricular block [Unknown]
  - Renal failure acute [Unknown]
  - Gangrene [Unknown]
  - Barrett^s oesophagus [Unknown]
  - Colitis [Unknown]
  - Gastrooesophageal reflux disease [Unknown]
  - Anaemia [Unknown]
  - Nephrolithiasis [Unknown]
  - Polyp [Unknown]
  - Hiatus hernia [Unknown]
  - Body height decreased [Unknown]
  - Throat irritation [Unknown]
  - Gastrooesophageal reflux disease [Unknown]
  - Oesophageal discomfort [Unknown]
  - Abdominal pain upper [Unknown]
  - Drug ineffective [Unknown]
  - Intentional product misuse [Unknown]
  - Off label use [Unknown]
